FAERS Safety Report 21248516 (Version 2)
Quarter: 2022Q3

REPORT INFORMATION
  Report Type: Report from Study
  Country: ES (occurrence: ES)
  Receive Date: 20220824
  Receipt Date: 20220912
  Transmission Date: 20221027
  Serious: Yes (Hospitalization)
  Sender: FDA-Public Use
  Company Number: ES-PFIZER INC-PV202200042422

PATIENT
  Age: 76 Year
  Sex: Female
  Weight: 101.1 kg

DRUGS (4)
  1. SUNITINIB MALATE [Suspect]
     Active Substance: SUNITINIB MALATE
     Indication: Sarcoma
     Dosage: 37.5 MG, DAILY
     Route: 048
     Dates: start: 20220520, end: 20220602
  2. SUNITINIB MALATE [Suspect]
     Active Substance: SUNITINIB MALATE
     Dosage: 25 MG, DAILY
     Route: 048
     Dates: start: 20220603, end: 20220609
  3. NIVOLUMAB [Suspect]
     Active Substance: NIVOLUMAB
     Indication: Sarcoma
     Dosage: 309 MG, 2X/DAY
     Route: 042
     Dates: start: 20220603, end: 20220603
  4. DIGOXIN [Concomitant]
     Active Substance: DIGOXIN

REACTIONS (2)
  - Atrial fibrillation [Recovered/Resolved]
  - Cardiotoxicity [Unknown]

NARRATIVE: CASE EVENT DATE: 20220806
